FAERS Safety Report 19242119 (Version 2)
Quarter: 2022Q2

REPORT INFORMATION
  Report Type: Spontaneous
  Country: US (occurrence: US)
  Receive Date: 20210510
  Receipt Date: 20220518
  Transmission Date: 20220721
  Serious: No
  Sender: FDA-Public Use
  Company Number: US-NOVOPROD-793515

PATIENT
  Age: 59 Year
  Sex: Female

DRUGS (5)
  1. NORDITROPIN [Suspect]
     Active Substance: SOMATROPIN
     Dosage: 0.15 MG
     Route: 065
     Dates: start: 20201010, end: 202010
  2. NORDITROPIN [Suspect]
     Active Substance: SOMATROPIN
     Dosage: 0.2 (UNITS NOT REPORTED)
     Route: 065
     Dates: start: 202010, end: 202010
  3. NORDITROPIN [Suspect]
     Active Substance: SOMATROPIN
     Indication: Product used for unknown indication
     Dosage: VERY LOW DOSE
     Route: 065
     Dates: start: 202010, end: 202010
  4. NORDITROPIN [Suspect]
     Active Substance: SOMATROPIN
     Dosage: 0.3 MG, QD
     Route: 065
     Dates: start: 20201010, end: 20201010
  5. NORDITROPIN [Suspect]
     Active Substance: SOMATROPIN
     Dosage: 0.25 (UNITS NOT REPORTED)
     Route: 065
     Dates: start: 202010, end: 202010

REACTIONS (7)
  - Gait disturbance [Recovered/Resolved]
  - Inflammation [Recovered/Resolved]
  - Food allergy [Unknown]
  - Dry skin [Not Recovered/Not Resolved]
  - Skin lesion [Not Recovered/Not Resolved]
  - Hypersensitivity [Recovered/Resolved]
  - Arthralgia [Recovered/Resolved]

NARRATIVE: CASE EVENT DATE: 20201001
